FAERS Safety Report 23157379 (Version 3)
Quarter: 2023Q4

REPORT INFORMATION
  Report Type: Spontaneous
  Country: US (occurrence: US)
  Receive Date: 20231108
  Receipt Date: 20231201
  Transmission Date: 20240109
  Serious: Yes (Life-Threatening, Hospitalization, Other)
  Sender: FDA-Public Use
  Company Number: US-002147023-NVSC2023US238003

PATIENT
  Age: 51 Year
  Sex: Male

DRUGS (2)
  1. COSENTYX [Suspect]
     Active Substance: SECUKINUMAB
     Indication: Psoriasis
     Dosage: 300 MG (WEEKLY THEN MONTHLY)
     Route: 058
     Dates: start: 20230710, end: 20231012
  2. COSENTYX [Suspect]
     Active Substance: SECUKINUMAB
     Indication: Psoriatic arthropathy

REACTIONS (9)
  - Colitis ulcerative [Recovering/Resolving]
  - Diarrhoea [Unknown]
  - Abdominal pain [Unknown]
  - Lower gastrointestinal haemorrhage [Unknown]
  - Haematochezia [Unknown]
  - Inflammatory bowel disease [Unknown]
  - Abscess intestinal [Unknown]
  - Cryptitis [Unknown]
  - Colitis [Unknown]

NARRATIVE: CASE EVENT DATE: 20231012
